FAERS Safety Report 17663816 (Version 1)
Quarter: 2020Q2

REPORT INFORMATION
  Report Type: Spontaneous
  Country: US (occurrence: US)
  Receive Date: 20200414
  Receipt Date: 20200414
  Transmission Date: 20200713
  Serious: No
  Sender: FDA-Public Use
  Company Number: US-ELI_LILLY_AND_COMPANY-US202004004355

PATIENT
  Sex: Female

DRUGS (1)
  1. INSULIN  LISPRO [Suspect]
     Active Substance: INSULIN LISPRO
     Indication: PRODUCT USED FOR UNKNOWN INDICATION
     Dosage: 1 TO 10 U, UNKNOWN
     Route: 065

REACTIONS (2)
  - Malaise [Unknown]
  - Impaired gastric emptying [Unknown]

NARRATIVE: CASE EVENT DATE: 2019
